FAERS Safety Report 23979326 (Version 1)
Quarter: 2024Q2

REPORT INFORMATION
  Report Type: Spontaneous
  Country: CN (occurrence: CN)
  Receive Date: 20240615
  Receipt Date: 20240615
  Transmission Date: 20240717
  Serious: Yes (Other)
  Sender: FDA-Public Use
  Company Number: None

PATIENT
  Age: 40 Year
  Sex: Female
  Weight: 36.5 kg

DRUGS (4)
  1. TRASTUZUMAB [Suspect]
     Active Substance: TRASTUZUMAB
     Indication: Breast cancer
     Dosage: 225 MILLIGRAM, Q3W
     Dates: start: 20240515, end: 20240515
  2. PYROTINIB [Suspect]
     Active Substance: PYROTINIB
     Indication: Breast cancer
     Dosage: 400 MILLIGRAM, QD, ONCE EVERY 3 WEEKS
     Route: 048
     Dates: start: 20240515, end: 20240526
  3. HALAVEN [Suspect]
     Active Substance: ERIBULIN MESYLATE
     Indication: Breast cancer
     Dosage: 1.7 MILLIGRAM, Q3W
     Dates: start: 20240515, end: 20240515
  4. HALAVEN [Suspect]
     Active Substance: ERIBULIN MESYLATE
     Indication: Breast cancer
     Dosage: 1.8 MILLIGRAM, Q3W; IV DRIP
     Dates: start: 20240522, end: 20240522

REACTIONS (1)
  - Myelosuppression [Recovering/Resolving]

NARRATIVE: CASE EVENT DATE: 20240526
